FAERS Safety Report 21181041 (Version 8)
Quarter: 2024Q1

REPORT INFORMATION
  Report Type: Spontaneous
  Country: US (occurrence: US)
  Receive Date: 20220806
  Receipt Date: 20240322
  Transmission Date: 20240409
  Serious: Yes (Hospitalization, Other)
  Sender: FDA-Public Use
  Company Number: US-SA-SAC20220729000167

PATIENT
  Age: 48 Year
  Sex: Male

DRUGS (2)
  1. DUPIXENT [Suspect]
     Active Substance: DUPILUMAB
     Indication: Dermatitis
     Dosage: 300 MG, QOW
     Route: 058
     Dates: start: 202204
  2. DUPIXENT [Suspect]
     Active Substance: DUPILUMAB
     Indication: Dermatitis atopic

REACTIONS (18)
  - Pneumococcal sepsis [Unknown]
  - Chest pain [Unknown]
  - Autoimmune disorder [Unknown]
  - Fungal infection [Unknown]
  - Peripheral swelling [Recovering/Resolving]
  - Product dose omission issue [Recovering/Resolving]
  - Swelling [Unknown]
  - Dry mouth [Unknown]
  - Injection site urticaria [Recovered/Resolved]
  - Diplopia [Unknown]
  - Visual impairment [Unknown]
  - Pruritus [Unknown]
  - Skin exfoliation [Unknown]
  - Erythema [Unknown]
  - Dry eye [Unknown]
  - Injection site pain [Unknown]
  - Drug effect less than expected [Unknown]
  - Product use in unapproved indication [Unknown]

NARRATIVE: CASE EVENT DATE: 20220101
